FAERS Safety Report 8453781-4 (Version None)
Quarter: 2012Q2

REPORT INFORMATION
  Report Type: 
  Country: None (occurrence: None)
  Receive Date: 20120620
  Receipt Date: 20120611
  Transmission Date: 20120825
  Serious: Yes (Hospitalization)
  Sender: FDA-Public Use
  Company Number: FR-ASTRAZENECA-2012SE34100

PATIENT
  Age: 30 Year
  Sex: Female

DRUGS (6)
  1. IBUPROFEN [Concomitant]
     Route: 048
     Dates: start: 20120505, end: 20120509
  2. OXAZEPAM [Concomitant]
  3. FERROUS FUMARATE [Concomitant]
     Route: 048
     Dates: start: 20120509, end: 20120511
  4. VALIUM [Concomitant]
     Route: 048
     Dates: start: 20120502, end: 20120511
  5. QUETIAPINE FUMARATE [Suspect]
     Route: 048
     Dates: start: 20120510, end: 20120510
  6. TERCIAN [Concomitant]
     Route: 048
     Dates: end: 20120511

REACTIONS (11)
  - HYPERTHERMIA [None]
  - MONOCYTOSIS [None]
  - MUSCULOSKELETAL STIFFNESS [None]
  - HYPOTENSION [None]
  - SEDATION [None]
  - THROMBOCYTOPENIA [None]
  - CYTOLYTIC HEPATITIS [None]
  - BACK PAIN [None]
  - PHARYNGITIS [None]
  - LYMPHOPENIA [None]
  - INFLUENZA LIKE ILLNESS [None]
